FAERS Safety Report 8407022-4 (Version None)
Quarter: 2012Q2

REPORT INFORMATION
  Report Type: 
  Country: None (occurrence: None)
  Receive Date: 20120529
  Receipt Date: 20050713
  Transmission Date: 20120825
  Serious: Yes (Hospitalization, Disabling)
  Sender: FDA-Public Use
  Company Number: 02100-JPN-05-0322

PATIENT
  Age: 85 Year
  Sex: Female

DRUGS (14)
  1. GRAMALIL (TIAPRIDE HYDROCHLORIDE) [Concomitant]
  2. PLETAL [Suspect]
     Dosage: 100 MG, BID, ORAL
     Route: 048
  3. ARICEPT [Suspect]
     Indication: DEMENTIA ALZHEIMER'S TYPE
     Dosage: 3 MG, QD, ORAL 5 MG, ORAL
     Route: 048
     Dates: start: 20020326, end: 20020331
  4. ARICEPT [Suspect]
     Indication: DEMENTIA ALZHEIMER'S TYPE
     Dosage: 3 MG, QD, ORAL 5 MG, ORAL
     Route: 048
     Dates: start: 20050409
  5. ARICEPT [Suspect]
     Indication: DEMENTIA ALZHEIMER'S TYPE
     Dosage: 3 MG, QD, ORAL 5 MG, ORAL
     Route: 048
     Dates: start: 20020401, end: 20050215
  6. PRAVASTATIN [Concomitant]
  7. RISPERDAL [Concomitant]
  8. CARBIDOPA AND LEVODOPA [Concomitant]
  9. PANTOSIN (PANTETHINE) [Concomitant]
  10. MAGNESIUM OXIDE (MAGNESIUM OXIDE) [Concomitant]
  11. BUP-4 (PROPIVERINE HYDROCHLORIDE) [Suspect]
     Dosage: 10 MG, QD, ORAL
     Route: 048
  12. ONEALFA (ALFACALCIDOL) [Suspect]
     Dosage: 0.5 UG, QD, ORAL
     Route: 048
  13. NORVASC [Concomitant]
  14. SYMMETREL [Concomitant]

REACTIONS (8)
  - GAIT DISTURBANCE [None]
  - VOMITING [None]
  - NAUSEA [None]
  - FALL [None]
  - PALLOR [None]
  - SOMNOLENCE [None]
  - LOSS OF CONSCIOUSNESS [None]
  - SYNCOPE [None]
